FAERS Safety Report 8350867-X (Version None)
Quarter: 2012Q2

REPORT INFORMATION
  Report Type: 
  Country: None (occurrence: None)
  Receive Date: 20120510
  Receipt Date: 20120417
  Transmission Date: 20120825
  Serious: Yes (Other)
  Sender: FDA-Public Use
  Company Number: FR-ROCHE-1063618

PATIENT
  Sex: Male

DRUGS (4)
  1. LUCENTIS [Suspect]
     Indication: AGE-RELATED MACULAR DEGENERATION
     Route: 050
     Dates: start: 20090721
  2. LUCENTIS [Suspect]
     Route: 050
     Dates: start: 20101013
  3. LUCENTIS [Suspect]
     Route: 050
     Dates: start: 20091028
  4. LUCENTIS [Suspect]
     Route: 050
     Dates: start: 20090805

REACTIONS (4)
  - SCOTOMA [None]
  - INJECTION [None]
  - READING DISORDER [None]
  - AGE-RELATED MACULAR DEGENERATION [None]
